FAERS Safety Report 20161496 (Version 1)
Quarter: 2021Q4

REPORT INFORMATION
  Report Type: Report from Study
  Country: TW (occurrence: TW)
  Receive Date: 20211208
  Receipt Date: 20211208
  Transmission Date: 20220303
  Serious: Yes (Hospitalization)
  Sender: FDA-Public Use
  Company Number: TW-TAKEDA-2021TUS077884

PATIENT
  Age: 32 Year
  Sex: Male

DRUGS (3)
  1. IDURSULFASE [Suspect]
     Active Substance: IDURSULFASE
     Indication: Mucopolysaccharidosis II
     Dosage: UNK UNK, 1/WEEK
     Route: 042
     Dates: start: 20101020
  2. IDURSULFASE [Suspect]
     Active Substance: IDURSULFASE
     Dosage: 0.50 MILLIGRAM/KILOGRAM, 1/WEEK
     Route: 042
     Dates: start: 20190509, end: 20210531
  3. IDURSULFASE [Suspect]
     Active Substance: IDURSULFASE
     Dosage: 0.48 MILLIGRAM/KILOGRAM, 1/WEEK
     Route: 042
     Dates: start: 20211125

REACTIONS (1)
  - Heart valve stenosis [Recovered/Resolved]

NARRATIVE: CASE EVENT DATE: 20210923
